FAERS Safety Report 5699829-1 (Version None)
Quarter: 2008Q2

REPORT INFORMATION
  Report Type: 
  Country: None (occurrence: None)
  Receive Date: 20080410
  Receipt Date: 20080312
  Transmission Date: 20081010
  Serious: No
  Sender: FDA-Public Use
  Company Number: US-BOEHRINGER INGELHEIM GMBH, GERMANY-2008-BP-01981BP

PATIENT
  Age: 62 Year
  Sex: Male
  Weight: 93 kg

DRUGS (12)
  1. SPIRIVA [Suspect]
     Indication: CHRONIC OBSTRUCTIVE PULMONARY DISEASE
     Route: 055
     Dates: start: 20070901, end: 20080203
  2. SPIRIVA [Suspect]
     Indication: EMPHYSEMA
  3. VENTOLIN [Concomitant]
     Indication: CHRONIC OBSTRUCTIVE PULMONARY DISEASE
  4. ADVAIR HFA [Concomitant]
     Indication: CHRONIC OBSTRUCTIVE PULMONARY DISEASE
  5. CARDIZEM CD [Concomitant]
     Indication: CARDIAC DISORDER
     Dates: start: 20070507
  6. CENTRUM MTV [Concomitant]
  7. VIAGRA [Concomitant]
  8. DARVOCET-N 100 [Concomitant]
     Dates: start: 20070507
  9. XANAX [Concomitant]
     Route: 048
     Dates: start: 20070507
  10. LEXAPRO [Concomitant]
     Dates: start: 20070531
  11. NEURONTIN [Concomitant]
     Dates: start: 20070531
  12. KLOR-CON [Concomitant]
     Dates: start: 20070627

REACTIONS (1)
  - BLOOD URINE PRESENT [None]
